FAERS Safety Report 7810138-4 (Version None)
Quarter: 2011Q4

REPORT INFORMATION
  Report Type: 
  Country: None (occurrence: None)
  Receive Date: 20111012
  Receipt Date: 20111009
  Transmission Date: 20120403
  Serious: Yes (Other)
  Sender: FDA-Public Use
  Company Number: US-PFIZER INC-2011240502

PATIENT
  Sex: Female
  Weight: 56.689 kg

DRUGS (2)
  1. LATANOPROST [Suspect]
     Indication: INTRAOCULAR PRESSURE INCREASED
     Dosage: 1 GTT, EACH EYE DAILY
     Route: 047
     Dates: start: 20110401, end: 20110701
  2. TRAVOPROST [Suspect]
     Indication: INTRAOCULAR PRESSURE INCREASED
     Dosage: 1 GTT, EACH EYE DAILY
     Route: 047
     Dates: start: 20110701, end: 20110101

REACTIONS (2)
  - INTRAOCULAR PRESSURE INCREASED [None]
  - DRUG INEFFECTIVE [None]
